FAERS Safety Report 5154036-6 (Version None)
Quarter: 2006Q4

REPORT INFORMATION
  Report Type: 
  Country: None (occurrence: None)
  Receive Date: 20061120
  Receipt Date: 20060922
  Transmission Date: 20070319
  Serious: Yes (Other)
  Sender: FDA-Public Use
  Company Number: IT-AVENTIS-200619881GDDC

PATIENT
  Age: 68 Year
  Sex: Female

DRUGS (1)
  1. ARAVA [Suspect]
     Indication: PSORIATIC ARTHROPATHY
     Route: 048
     Dates: start: 20060710

REACTIONS (1)
  - VARICOPHLEBITIS [None]
